FAERS Safety Report 8301988-9 (Version None)
Quarter: 2012Q2

REPORT INFORMATION
  Report Type: 
  Country: None (occurrence: None)
  Receive Date: 20120420
  Receipt Date: 20120410
  Transmission Date: 20120825
  Serious: Yes (Hospitalization)
  Sender: FDA-Public Use
  Company Number: ES-JNJFOC-20080200575

PATIENT
  Sex: Female
  Weight: 70 kg

DRUGS (22)
  1. METHOTREXATE [Suspect]
     Indication: RHEUMATOID ARTHRITIS
     Dosage: WEEK 32-41
     Route: 048
     Dates: start: 20070620, end: 20070821
  2. METHOTREXATE [Suspect]
     Route: 048
     Dates: start: 20070103, end: 20070110
  3. FLUTICASONE FUROATE [Concomitant]
     Route: 055
     Dates: start: 20070524
  4. SALIDUR [Concomitant]
     Route: 048
     Dates: start: 20070530
  5. METHOTREXATE [Suspect]
     Dosage: WEEK 4-9
     Route: 048
     Dates: start: 20061205, end: 20061226
  6. GOLIMUMAB [Suspect]
     Route: 058
     Dates: start: 20080128
  7. BUPRENORPHINE [Concomitant]
     Route: 062
     Dates: start: 20070323
  8. NOLOTIL [Concomitant]
     Route: 048
     Dates: start: 20070530
  9. ISONIACIDE [Concomitant]
     Route: 048
     Dates: start: 20070531
  10. FORMOTEROL FUMARATE [Concomitant]
     Route: 055
  11. GOLIMUMAB [Suspect]
     Indication: RHEUMATOID ARTHRITIS
     Route: 058
     Dates: start: 20071204
  12. METHOTREXATE [Suspect]
     Dosage: WEEK 24-25
     Route: 048
     Dates: start: 20070424, end: 20070501
  13. SPIRIVA [Concomitant]
     Route: 055
  14. NAPROXENO [Concomitant]
     Route: 048
     Dates: start: 20070531
  15. METHOTREXATE [Suspect]
     Dosage: WEEK 56
     Route: 048
     Dates: start: 20071204
  16. METHOTREXATE [Suspect]
     Dosage: WEEK 1-3
     Route: 048
     Dates: start: 20061107, end: 20061128
  17. FOLIC ACID [Concomitant]
     Route: 048
     Dates: start: 20070531
  18. GOLIMUMAB [Suspect]
     Route: 058
     Dates: start: 20071105
  19. METHOTREXATE [Suspect]
     Dosage: WEEK 44-55
     Route: 048
     Dates: start: 20070911, end: 20071204
  20. METHOTREXATE [Suspect]
     Dosage: WEEK 12-20
     Route: 048
     Dates: start: 20070130, end: 20070327
  21. OMEPRAZOLE [Concomitant]
     Route: 048
     Dates: start: 20040514
  22. SALMETEROL [Concomitant]
     Route: 055
     Dates: start: 20070524

REACTIONS (1)
  - RESPIRATORY TRACT INFECTION [None]
